FAERS Safety Report 13896715 (Version 2)
Quarter: 2017Q3

REPORT INFORMATION
  Report Type: Spontaneous
  Country: US (occurrence: US)
  Receive Date: 20170823
  Receipt Date: 20170901
  Transmission Date: 20171127
  Serious: Yes (Death, Hospitalization)
  Sender: FDA-Public Use
  Company Number: US-JNJFOC-20170819424

PATIENT
  Age: 67 Year
  Sex: Male

DRUGS (4)
  1. XARELTO [Suspect]
     Active Substance: RIVAROXABAN
     Indication: DEEP VEIN THROMBOSIS
     Dosage: DOSE VARYING FROM 15 MG AND 20 MG
     Route: 048
     Dates: start: 20160402, end: 20160707
  2. XARELTO [Suspect]
     Active Substance: RIVAROXABAN
     Indication: CEREBROVASCULAR ACCIDENT PROPHYLAXIS
     Dosage: DOSE VARYING FROM 15 MG AND 20 MG
     Route: 048
     Dates: start: 20160402, end: 20160707
  3. XARELTO [Suspect]
     Active Substance: RIVAROXABAN
     Indication: PULMONARY EMBOLISM
     Dosage: DOSE VARYING FROM 15 MG AND 20 MG
     Route: 048
     Dates: start: 20160402, end: 20160707
  4. XARELTO [Suspect]
     Active Substance: RIVAROXABAN
     Indication: ATRIAL FIBRILLATION
     Dosage: DOSE VARYING FROM 15 MG AND 20 MG
     Route: 048
     Dates: start: 20160402, end: 20160707

REACTIONS (2)
  - Epistaxis [Unknown]
  - Gastrointestinal haemorrhage [Fatal]

NARRATIVE: CASE EVENT DATE: 201607
